FAERS Safety Report 15478377 (Version 1)
Quarter: 2018Q4

REPORT INFORMATION
  Report Type: Spontaneous
  Country: US (occurrence: US)
  Receive Date: 20181002
  Receipt Date: 20181002
  Transmission Date: 20190205
  Serious: No
  Sender: FDA-Public Use
  Company Number: None

PATIENT
  Age: 51 Year
  Sex: Male
  Weight: 78.75 kg

DRUGS (1)
  1. TRANS DERMAL SCOPOLAMINE [Suspect]
     Active Substance: SCOPOLAMINE
     Indication: PROPHYLAXIS OF NAUSEA AND VOMITING
     Dates: start: 20180928, end: 20180930

REACTIONS (3)
  - Nausea [None]
  - Balance disorder [None]
  - Drug withdrawal syndrome [None]

NARRATIVE: CASE EVENT DATE: 20181001
